FAERS Safety Report 4363597-6 (Version None)
Quarter: 2004Q2

REPORT INFORMATION
  Report Type: 
  Country: None (occurrence: None)
  Receive Date: 20040524
  Receipt Date: 20040524
  Transmission Date: 20050107
  Serious: No
  Sender: FDA-Public Use
  Company Number: None

PATIENT
  Age: 26 Year
  Sex: Male
  Weight: 68.0396 kg

DRUGS (1)
  1. PROPECIA [Suspect]
     Indication: MALE PATTERN BALDNESS
     Dosage: 1 MG DAY ORAL
     Route: 048
     Dates: start: 20031220, end: 20040120

REACTIONS (2)
  - ERECTILE DYSFUNCTION [None]
  - LIBIDO DISORDER [None]
